FAERS Safety Report 9604451 (Version 2)
Quarter: 2013Q4

REPORT INFORMATION
  Report Type: Spontaneous
  Country: FR (occurrence: FR)
  Receive Date: 20131008
  Receipt Date: 20131008
  Transmission Date: 20140711
  Serious: Yes (Other)
  Sender: FDA-Public Use
  Company Number: FR-MERCK-1307FRA013994

PATIENT
  Age: 42 Year
  Sex: Female

DRUGS (5)
  1. MONTELUKAST [Suspect]
     Indication: ASTHMA
     Dosage: 10 MG, QD
     Route: 048
     Dates: start: 20130412, end: 20130708
  2. AERIUS [Concomitant]
     Route: 048
  3. ATORVASTATIN CALCIUM [Concomitant]
     Route: 048
  4. DIAZEPAM [Concomitant]
     Route: 048
  5. LEVOTHYROX [Concomitant]
     Dosage: 1 DF, QD

REACTIONS (1)
  - Suffocation feeling [Recovered/Resolved]
